FAERS Safety Report 6346618-0 (Version None)
Quarter: 2009Q3

REPORT INFORMATION
  Report Type: 
  Country: None (occurrence: None)
  Receive Date: 20090827
  Receipt Date: 20090817
  Transmission Date: 20100115
  Serious: Yes (Other)
  Sender: FDA-Public Use
  Company Number: CHNY2009NZ01111

PATIENT
  Age: 33 Year
  Sex: Female
  Weight: 63 kg

DRUGS (3)
  1. NICOTINE [Suspect]
     Indication: SMOKING CESSATION THERAPY
     Dosage: 21 MG, TRANSDERMAL, 14 MG, TRANSDERMAL, 7 MG, TRANSDERMAL
     Route: 062
     Dates: end: 20090508
  2. NICOTINE [Suspect]
     Dosage: 4 MG, CHEWED
  3. NICOTINE [Suspect]
     Dosage: 2 MG, BUCCAL
     Route: 002

REACTIONS (7)
  - BREECH PRESENTATION [None]
  - CAESAREAN SECTION [None]
  - DRUG EXPOSURE DURING PREGNANCY [None]
  - INSOMNIA [None]
  - NIGHTMARE [None]
  - NORMAL NEWBORN [None]
  - PREMATURE LABOUR [None]
